FAERS Safety Report 6171347-6 (Version None)
Quarter: 2009Q2

REPORT INFORMATION
  Report Type: 
  Country: None (occurrence: None)
  Receive Date: 20090429
  Receipt Date: 20090422
  Transmission Date: 20091009
  Serious: Yes (Hospitalization)
  Sender: FDA-Public Use
  Company Number: FR-BRISTOL-MYERS SQUIBB COMPANY-14603815

PATIENT
  Age: 41 Year
  Sex: Female

DRUGS (6)
  1. ERBITUX [Suspect]
     Indication: COLORECTAL CANCER
     Route: 042
     Dates: start: 20090113, end: 20090113
  2. ELOXATIN [Suspect]
     Indication: COLORECTAL CANCER
     Route: 042
     Dates: start: 20090115, end: 20090115
  3. CAMPTOSAR [Suspect]
     Indication: COLORECTAL CANCER
     Dosage: SOLUTION FOR INJECTION
     Route: 042
     Dates: start: 20090114, end: 20090114
  4. METHYLPREDNISOLONE ACETATE [Concomitant]
     Indication: PREMEDICATION
     Dates: start: 20090113
  5. RANITIDINE [Concomitant]
     Indication: PREMEDICATION
     Dates: start: 20090113
  6. POLARAMINE [Concomitant]
     Indication: PREMEDICATION
     Dates: start: 20090113

REACTIONS (1)
  - BLOOD BILIRUBIN UNCONJUGATED INCREASED [None]
